FAERS Safety Report 8858171 (Version 1)
Quarter: 2012Q4

REPORT INFORMATION
  Report Type: 
  Country: US (occurrence: US)
  Receive Date: 20121024
  Receipt Date: 20121024
  Transmission Date: 20130627
  Serious: No
  Sender: FDA-Public Use
  Company Number: US-AMGEN-USASP2011066602

PATIENT
  Age: 56 Year
  Sex: Female

DRUGS (1)
  1. ENBREL [Suspect]
     Indication: RHEUMATOID ARTHRITIS
     Dosage: 50 mg, qwk
     Dates: start: 2003, end: 2009

REACTIONS (4)
  - Hepatic enzyme abnormal [Recovered/Resolved]
  - Osteoarthritis [Not Recovered/Not Resolved]
  - Injection site reaction [Unknown]
  - Infectious mononucleosis [Recovered/Resolved]
